FAERS Safety Report 4900646-8 (Version None)
Quarter: 2006Q1

REPORT INFORMATION
  Report Type: 
  Country: None (occurrence: None)
  Receive Date: 20060203
  Receipt Date: 20051219
  Transmission Date: 20060701
  Serious: Yes (Other)
  Sender: FDA-Public Use
  Company Number: JP-BRISTOL-MYERS SQUIBB COMPANY-13230347

PATIENT
  Age: 69 Year
  Sex: Female

DRUGS (6)
  1. GATIFLOXACIN [Suspect]
     Indication: CYSTITIS
     Dosage: SKIPPED DOSING ON THE EVENING OF 09-DEC-2005
     Route: 048
     Dates: start: 20051208, end: 20051211
  2. ATELEC [Concomitant]
     Route: 048
     Dates: start: 20020718
  3. MEVALOTIN [Concomitant]
     Route: 048
     Dates: start: 20030606
  4. ADONA [Concomitant]
     Route: 048
     Dates: start: 20020718, end: 20051209
  5. CARNACULIN [Concomitant]
     Route: 048
     Dates: start: 20020718, end: 20051209
  6. DASEN [Concomitant]
     Route: 048
     Dates: start: 20020718, end: 20051209

REACTIONS (5)
  - BLOOD PRESSURE DECREASED [None]
  - DYSPNOEA [None]
  - FATIGUE [None]
  - PALLOR [None]
  - SHOCK [None]
